FAERS Safety Report 21618116 (Version 1)
Quarter: 2022Q4

REPORT INFORMATION
  Report Type: Other
  Country: CA (occurrence: CA)
  Receive Date: 20221119
  Receipt Date: 20221119
  Transmission Date: 20230113
  Serious: Yes (Other)
  Sender: FDA-Public Use
  Company Number: CA-CELLTRION INC.-2022CA019067

PATIENT

DRUGS (24)
  1. RITUXIMAB [Suspect]
     Active Substance: RITUXIMAB
     Indication: Rheumatoid arthritis
     Dosage: 1000 MILLIGRAM
     Route: 042
  2. RITUXIMAB [Suspect]
     Active Substance: RITUXIMAB
     Dosage: UNK
     Route: 041
  3. ACETAMINOPHEN [Concomitant]
     Active Substance: ACETAMINOPHEN
     Indication: Premedication
     Dosage: 1000 MILLIGRAM
     Route: 048
  4. BOTULINUM TOXIN TYPE A [Concomitant]
     Active Substance: BOTULINUM TOXIN TYPE A
     Indication: Pain
  5. BOTULINUM TOXIN TYPE A [Concomitant]
     Active Substance: BOTULINUM TOXIN TYPE A
     Indication: Joint stiffness
  6. CITALOPRAM [Concomitant]
     Active Substance: CITALOPRAM HYDROBROMIDE
  7. CLONIDINE [Concomitant]
     Active Substance: CLONIDINE
  8. DIPHENHYDRAMINE HYDROCHLORIDE [Concomitant]
     Active Substance: DIPHENHYDRAMINE HYDROCHLORIDE
     Indication: Premedication
     Dosage: 50 MILLIGRAM
     Route: 048
  9. DULOXETINE HYDROCHLORIDE [Concomitant]
     Active Substance: DULOXETINE HYDROCHLORIDE
     Route: 065
  10. FENTANYL [Concomitant]
     Active Substance: FENTANYL
  11. FOLIC ACID [Concomitant]
     Active Substance: FOLIC ACID
  12. GABAPENTIN [Concomitant]
     Active Substance: GABAPENTIN
  13. HYDRODIURIL [Concomitant]
     Active Substance: HYDROCHLOROTHIAZIDE
  14. HYDROMORPHONE [Concomitant]
     Active Substance: HYDROMORPHONE
  15. HYDROXYCHLOROQUINE SULFATE [Concomitant]
     Active Substance: HYDROXYCHLOROQUINE SULFATE
  16. IRON [Concomitant]
     Active Substance: IRON
  17. METHYLPREDNISOLONE [Concomitant]
     Active Substance: METHYLPREDNISOLONE
     Indication: Premedication
     Dosage: 100 MILLIGRAM
     Route: 042
  18. NAPROXEN [Concomitant]
     Active Substance: NAPROXEN
  19. NAPROXEN SODIUM [Concomitant]
     Active Substance: NAPROXEN SODIUM
  20. NORTRIPTYLINE [Concomitant]
     Active Substance: NORTRIPTYLINE
  21. PREDNISONE [Concomitant]
     Active Substance: PREDNISONE
  22. SENOKOT [Concomitant]
     Active Substance: SENNOSIDES
  23. TRANDOLAPRIL [Concomitant]
     Active Substance: TRANDOLAPRIL
  24. ZOPICLONE [Concomitant]
     Active Substance: ZOPICLONE

REACTIONS (12)
  - Back disorder [Recovered/Resolved]
  - Bone density decreased [Recovered/Resolved]
  - Productive cough [Recovered/Resolved]
  - Scoliosis [Recovered/Resolved]
  - Spondylitis [Recovered/Resolved]
  - Back pain [Recovered/Resolved]
  - Asthenia [Recovered/Resolved]
  - COVID-19 [Recovered/Resolved]
  - Cough [Recovered/Resolved]
  - Fatigue [Recovered/Resolved]
  - Pneumonia [Recovered/Resolved]
  - Pyrexia [Recovered/Resolved]
